FAERS Safety Report 6458954-8 (Version None)
Quarter: 2009Q4

REPORT INFORMATION
  Report Type: 
  Country: None (occurrence: None)
  Receive Date: 20091127
  Receipt Date: 20091116
  Transmission Date: 20100525
  Serious: Yes (Other)
  Sender: FDA-Public Use
  Company Number: IT-ELI_LILLY_AND_COMPANY-IT200911003936

PATIENT
  Sex: Male

DRUGS (2)
  1. STRATTERA [Suspect]
     Indication: ATTENTION DEFICIT/HYPERACTIVITY DISORDER
     Dosage: 35 MG, UNKNOWN
     Route: 065
  2. STRATTERA [Suspect]
     Dosage: 18 MG, UNKNOWN
     Route: 065
     Dates: start: 20090624, end: 20090724

REACTIONS (2)
  - HYPERHIDROSIS [None]
  - WEIGHT INCREASED [None]
